FAERS Safety Report 7904592-7 (Version None)
Quarter: 2011Q4

REPORT INFORMATION
  Report Type: 
  Country: None (occurrence: None)
  Receive Date: 20111109
  Receipt Date: 20110224
  Transmission Date: 20120403
  Serious: Yes (Hospitalization)
  Sender: FDA-Public Use
  Company Number: US-GLAXOSMITHKLINE-A0915612A

PATIENT
  Age: 82 Year
  Sex: Female

DRUGS (1)
  1. AVANDIA [Suspect]
     Indication: DIABETES MELLITUS
     Route: 048
     Dates: start: 20000201, end: 20080601

REACTIONS (11)
  - STENT PLACEMENT [None]
  - AORTIC STENOSIS [None]
  - FATIGUE [None]
  - ATRIAL FIBRILLATION [None]
  - DYSPNOEA [None]
  - CARDIAC FAILURE [None]
  - ASTHENIA [None]
  - HEART VALVE REPLACEMENT [None]
  - CHEST PAIN [None]
  - ARTERIOSCLEROSIS CORONARY ARTERY [None]
  - MITRAL VALVE INCOMPETENCE [None]
